FAERS Safety Report 12818230 (Version 1)
Quarter: 2016Q4

REPORT INFORMATION
  Report Type: Spontaneous
  Country: US (occurrence: US)
  Receive Date: 20161005
  Receipt Date: 20161005
  Transmission Date: 20170207
  Serious: No
  Sender: FDA-Public Use
  Company Number: US-ACTELION-A-US2016-143271

PATIENT
  Age: 31 Year
  Sex: Female

DRUGS (1)
  1. VELETRI [Suspect]
     Active Substance: EPOPROSTENOL
     Indication: PULMONARY ARTERIAL HYPERTENSION
     Dosage: 74.8 NG/KG, PER MIN
     Route: 042
     Dates: start: 20110609

REACTIONS (2)
  - Paraesthesia oral [Unknown]
  - Device infusion issue [Recovered/Resolved]
